FAERS Safety Report 6904851-0 (Version None)
Quarter: 2010Q3

REPORT INFORMATION
  Report Type: 
  Country: None (occurrence: None)
  Receive Date: 20100804
  Receipt Date: 20090722
  Transmission Date: 20110219
  Serious: No
  Sender: FDA-Public Use
  Company Number: US-PFIZER INC-2009224214

PATIENT
  Sex: Female
  Weight: 56.7 kg

DRUGS (6)
  1. LYRICA [Suspect]
     Indication: FIBROMYALGIA
     Dosage: 25 MG, UNK
     Dates: start: 20090501
  2. ATENOLOL [Concomitant]
     Dosage: UNK
  3. AMITRIPTYLINE [Concomitant]
     Dosage: UNK
  4. ASCORBIC ACID [Concomitant]
     Dosage: UNK
  5. VITAMIN B-12 [Concomitant]
     Dosage: UNK
  6. DDAVP [Concomitant]
     Dosage: UNK

REACTIONS (4)
  - PAIN [None]
  - PRURITUS [None]
  - RASH ERYTHEMATOUS [None]
  - RASH PAPULAR [None]
